FAERS Safety Report 10179324 (Version 1)
Quarter: 2014Q2

REPORT INFORMATION
  Report Type: Spontaneous
  Country: IS (occurrence: IS)
  Receive Date: 20140519
  Receipt Date: 20140519
  Transmission Date: 20141212
  Serious: Yes (Hospitalization)
  Sender: FDA-Public Use
  Company Number: IS-SA-2014SA059359

PATIENT
  Sex: Male

DRUGS (3)
  1. LANTUS [Suspect]
     Indication: DIABETES MELLITUS
     Route: 058
  2. FORXIGA [Concomitant]
     Indication: DIABETES MELLITUS
     Dosage: TAKEN FROM MIDDLE OF MARCH TO END OF MARCH
     Dates: start: 201403, end: 201403
  3. NOVORAPID [Concomitant]
     Indication: DIABETES MELLITUS
     Route: 058

REACTIONS (1)
  - Ketoacidosis [Unknown]
